FAERS Safety Report 6714255-1 (Version None)
Quarter: 2010Q2

REPORT INFORMATION
  Report Type: 
  Country: None (occurrence: None)
  Receive Date: 20100506
  Receipt Date: 20090601
  Transmission Date: 20101027
  Serious: No
  Sender: FDA-Public Use
  Company Number: US-BAUSCH-2009BL002645

PATIENT
  Age: 54 Year
  Sex: Female

DRUGS (3)
  1. LOTEMAX [Suspect]
     Indication: DRY EYE
     Route: 047
     Dates: start: 20090401, end: 20090518
  2. LOTEMAX [Suspect]
     Indication: OFF LABEL USE
     Route: 047
     Dates: start: 20090401, end: 20090518
  3. RESTASIS [Concomitant]
     Indication: DRY EYE
     Route: 047
     Dates: start: 20090401, end: 20090518

REACTIONS (2)
  - CONDITION AGGRAVATED [None]
  - OCULAR HYPERAEMIA [None]
